FAERS Safety Report 6862032-3 (Version None)
Quarter: 2010Q3

REPORT INFORMATION
  Report Type: 
  Country: None (occurrence: None)
  Receive Date: 20100721
  Receipt Date: 20100707
  Transmission Date: 20110219
  Serious: Yes (Hospitalization)
  Sender: FDA-Public Use
  Company Number: US-ELI_LILLY_AND_COMPANY-US201006005116

PATIENT
  Sex: Female

DRUGS (9)
  1. FORTEO [Suspect]
     Indication: OSTEOPOROSIS
     Dosage: 20 UG, DAILY (1/D)
     Dates: end: 20100504
  2. FORTEO [Suspect]
     Dosage: 20 UG, DAILY (1/D)
  3. POTASSIUM CHLORIDE [Concomitant]
  4. LASIX [Concomitant]
  5. PROTEIN SUPPLEMENTS [Concomitant]
  6. AMBIEN [Concomitant]
  7. SYNTHROID [Concomitant]
  8. VITAMIN D3 [Concomitant]
  9. MULTI-VITAMIN [Concomitant]

REACTIONS (4)
  - FALL [None]
  - FOOT FRACTURE [None]
  - HIP FRACTURE [None]
  - SKELETAL INJURY [None]
